FAERS Safety Report 5037231-6 (Version None)
Quarter: 2006Q2

REPORT INFORMATION
  Report Type: 
  Country: None (occurrence: None)
  Receive Date: 20060628
  Receipt Date: 20060615
  Transmission Date: 20061013
  Serious: Yes (Hospitalization)
  Sender: FDA-Public Use
  Company Number: NO-MERCK-0606NOR00003

PATIENT
  Age: 70 Year
  Sex: Male

DRUGS (3)
  1. ZOCOR [Suspect]
     Indication: CORONARY ARTERY DISEASE
     Route: 048
     Dates: end: 20060503
  2. ZOCOR [Suspect]
     Route: 048
     Dates: start: 20060503, end: 20060515
  3. ZOCOR [Suspect]
     Route: 048
     Dates: start: 20060515, end: 20060524

REACTIONS (6)
  - ACCIDENTAL OVERDOSE [None]
  - GENERAL PHYSICAL HEALTH DETERIORATION [None]
  - INCORRECT DOSE ADMINISTERED [None]
  - MUSCLE ATROPHY [None]
  - MUSCULAR WEAKNESS [None]
  - OVERDOSE [None]
